FAERS Safety Report 8544593-1 (Version None)
Quarter: 2012Q3

REPORT INFORMATION
  Report Type: 
  Country: None (occurrence: None)
  Receive Date: 20120727
  Receipt Date: 20120717
  Transmission Date: 20120928
  Serious: Yes (Life-Threatening)
  Sender: FDA-Public Use
  Company Number: US-GENZYME-CERZ-1002559

PATIENT
  Sex: Female
  Weight: 58.2 kg

DRUGS (5)
  1. CEREZYME [Suspect]
     Dosage: 34.36 U/KG, Q2W
     Route: 042
     Dates: start: 20041101, end: 20110101
  2. VPRIV [Concomitant]
     Indication: GAUCHER'S DISEASE
     Dosage: UNK
     Route: 065
     Dates: end: 20110401
  3. JOLESSA [Concomitant]
     Indication: CONTRACEPTION
     Route: 065
  4. CEREZYME [Suspect]
     Indication: GAUCHER'S DISEASE
     Dosage: 34.36 U/KG, Q2W
     Route: 042
     Dates: start: 20041101, end: 20120629
  5. DIPHENHYDRAMINE HCL [Concomitant]
     Indication: PREMEDICATION
     Dosage: 25 MG, UNK
     Route: 065
     Dates: start: 20120629, end: 20120629

REACTIONS (5)
  - RASH MACULAR [None]
  - CHEST DISCOMFORT [None]
  - PRURITUS [None]
  - ANAPHYLACTIC REACTION [None]
  - THROAT TIGHTNESS [None]
